FAERS Safety Report 11962827 (Version 1)
Quarter: 2016Q1

REPORT INFORMATION
  Report Type: Spontaneous
  Country: US (occurrence: US)
  Receive Date: 20160126
  Receipt Date: 20160126
  Transmission Date: 20160526
  Serious: Yes (Other)
  Sender: FDA-Public Use
  Company Number: US-TEVA-627740USA

PATIENT
  Age: 26 Year
  Sex: Female

DRUGS (1)
  1. ZECUITY [Suspect]
     Active Substance: SUMATRIPTAN SUCCINATE
     Route: 062
     Dates: start: 20151212

REACTIONS (5)
  - Application site bruise [Not Recovered/Not Resolved]
  - Application site exfoliation [Unknown]
  - Application site discolouration [Unknown]
  - Application site scar [Not Recovered/Not Resolved]
  - Application site pain [Unknown]

NARRATIVE: CASE EVENT DATE: 20151212
